FAERS Safety Report 10945944 (Version 2)
Quarter: 2015Q3

REPORT INFORMATION
  Report Type: Spontaneous
  Country: US (occurrence: US)
  Receive Date: 20150323
  Receipt Date: 20150729
  Transmission Date: 20151125
  Serious: Yes (Hospitalization, Other)
  Sender: FDA-Public Use
  Company Number: US-BAYER-2015-045233

PATIENT
  Age: 24 Year
  Sex: Female
  Weight: 64.85 kg

DRUGS (5)
  1. IBUPROFEN [IBUPROFEN] [Concomitant]
     Active Substance: IBUPROFEN
     Indication: PAIN
     Dosage: 800 MG, Q8HR PRN
     Route: 048
     Dates: start: 20130722
  2. MIRENA [Suspect]
     Active Substance: LEVONORGESTREL
     Indication: CONTRACEPTION
     Dosage: 20 MCG/24HR, CONT
     Route: 015
     Dates: start: 20080715, end: 20130726
  3. CYTOTEC [Concomitant]
     Active Substance: MISOPROSTOL
     Dosage: 200 ?G, UNK
     Dates: start: 20130710
  4. NORCO [Concomitant]
     Active Substance: ACETAMINOPHEN\HYDROCODONE BITARTRATE
     Dosage: 325 MG-5MG  Q4-6 HOURS, PRN
     Route: 048
     Dates: start: 20130722
  5. DIFLUCAN [Concomitant]
     Active Substance: FLUCONAZOLE
     Dosage: 150 MG, ONE DOSE
     Route: 048
     Dates: start: 20130722

REACTIONS (10)
  - Device issue [None]
  - Emotional distress [None]
  - Fear [None]
  - Device dislocation [None]
  - Injury [None]
  - Uterine perforation [None]
  - Medical device discomfort [None]
  - Depression [None]
  - Pain [None]
  - Anxiety [None]

NARRATIVE: CASE EVENT DATE: 20080908
